FAERS Safety Report 6647629-8 (Version None)
Quarter: 2010Q1

REPORT INFORMATION
  Report Type: 
  Country: None (occurrence: None)
  Receive Date: 20100323
  Receipt Date: 20100323
  Transmission Date: 20100710
  Serious: Yes (Life-Threatening)
  Sender: FDA-Public Use
  Company Number: None

PATIENT
  Age: 60 Year
  Sex: Female
  Weight: 62.5964 kg

DRUGS (2)
  1. LYRICA [Suspect]
     Indication: FIBROMYALGIA
     Dosage: 1 CAPSULE TWICE DAILY PO
     Route: 048
     Dates: start: 20080115, end: 20080315
  2. LYRICA [Suspect]
     Indication: RHEUMATOID ARTHRITIS
     Dosage: 1 CAPSULE TWICE DAILY PO
     Route: 048
     Dates: start: 20080115, end: 20080315

REACTIONS (2)
  - VOMITING PROJECTILE [None]
  - WEIGHT INCREASED [None]
